FAERS Safety Report 19749816 (Version 1)
Quarter: 2021Q3

REPORT INFORMATION
  Report Type: Report from Study
  Country: FR (occurrence: FR)
  Receive Date: 20210826
  Receipt Date: 20210826
  Transmission Date: 20211014
  Serious: Yes (Other)
  Sender: FDA-Public Use
  Company Number: FR-JNJFOC-20210836715

PATIENT

DRUGS (6)
  1. CERTOLIZUMAB [Suspect]
     Active Substance: CERTOLIZUMAB
  2. ETANERCEPT [Suspect]
     Active Substance: ETANERCEPT
  3. REMICADE [Suspect]
     Active Substance: INFLIXIMAB
     Indication: TAKAYASU^S ARTERITIS
     Dosage: 5 MG/KG [3?10] AND EVERY 4 [4?8] WEEKS
     Route: 042
  4. TOCILIZUMAB. [Suspect]
     Active Substance: TOCILIZUMAB
     Route: 058
  5. SIMPONI [Suspect]
     Active Substance: GOLIMUMAB
     Indication: TAKAYASU^S ARTERITIS
     Route: 058
  6. ADALIMUMAB [Suspect]
     Active Substance: ADALIMUMAB

REACTIONS (10)
  - Breast neoplasm [Unknown]
  - Renal neoplasm [Unknown]
  - Headache [Unknown]
  - Treatment failure [Unknown]
  - Infusion related reaction [Unknown]
  - Infection [Unknown]
  - Acute polyneuropathy [Unknown]
  - Off label use [Unknown]
  - Skin cancer [Unknown]
  - Product use in unapproved indication [Unknown]
